FAERS Safety Report 18279281 (Version 3)
Quarter: 2021Q1

REPORT INFORMATION
  Report Type: Report from Study
  Country: BR (occurrence: BR)
  Receive Date: 20200917
  Receipt Date: 20210111
  Transmission Date: 20210419
  Serious: Yes (Other)
  Sender: FDA-Public Use
  Company Number: NVSC2020BR244267

PATIENT
  Sex: Male
  Weight: 65.5 kg

DRUGS (10)
  1. LACRIMA PLUS [Suspect]
     Active Substance: DEXTRAN 70\HYPROMELLOSES
     Indication: EYE PRURITUS
  2. LACTULON [Concomitant]
     Indication: PRODUCT USED FOR UNKNOWN INDICATION
     Dosage: 10 ML (EVERY 12 HOURS IF BOWEL STUCK)
     Route: 048
  3. LACTUGOLD [Concomitant]
     Active Substance: LACTULOSE
     Indication: CONSTIPATION
     Dosage: 10 ML, Q12H
     Route: 048
     Dates: start: 202008
  4. VOTRIENT [Suspect]
     Active Substance: PAZOPANIB HYDROCHLORIDE
     Indication: NEOPLASM
     Dosage: UNK (FROM 08 AUG)
     Route: 065
  5. LACRIMA PLUS [Suspect]
     Active Substance: DEXTRAN 70\HYPROMELLOSES
     Indication: DRY EYE
     Dosage: UNK
     Route: 047
     Dates: start: 202007
  6. INTERFERON BETA NOS [Suspect]
     Active Substance: INTERFERON BETA
     Indication: PRODUCT USED FOR UNKNOWN INDICATION
     Dosage: UNK (FROM 29 MAY TO 03 AUG)
     Route: 065
  7. PARACETAMOL [Concomitant]
     Active Substance: ACETAMINOPHEN
     Indication: PRODUCT USED FOR UNKNOWN INDICATION
     Dosage: 1 DF (30 MIN BEFORE APPLYING INTERFERON/ EVERY 6 HOURS IF PAIN)
     Route: 048
  8. VOTRIENT [Suspect]
     Active Substance: PAZOPANIB HYDROCHLORIDE
     Dosage: 2 DF, QD (2 TABLETS OF 400MG)
     Route: 065
     Dates: start: 20200608
  9. INTERFERON [Suspect]
     Active Substance: INTERFERON
     Indication: PRODUCT USED FOR UNKNOWN INDICATION
     Dosage: UNK
     Route: 065
  10. BROMOPRIDE [Concomitant]
     Active Substance: BROMOPRIDE
     Indication: PRODUCT USED FOR UNKNOWN INDICATION
     Dosage: 1 DF (EVERY 8 HOURS IF NAUSEA OR VOMITING)
     Route: 048

REACTIONS (29)
  - Hair colour changes [Unknown]
  - Anaemia [Unknown]
  - Poor quality sleep [Not Recovered/Not Resolved]
  - Feeling abnormal [Unknown]
  - Confusional state [Not Recovered/Not Resolved]
  - Drug ineffective [Not Recovered/Not Resolved]
  - Pericardial effusion [Unknown]
  - Pruritus [Not Recovered/Not Resolved]
  - Adrenal mass [Unknown]
  - Clear cell renal cell carcinoma [Unknown]
  - Neoplasm progression [Not Recovered/Not Resolved]
  - Somnolence [Unknown]
  - Tremor [Unknown]
  - Lymphadenopathy [Unknown]
  - Myalgia [Not Recovered/Not Resolved]
  - Dizziness [Not Recovered/Not Resolved]
  - Bone disorder [Unknown]
  - Metastases to lung [Unknown]
  - Microangiopathy [Unknown]
  - Fatigue [Unknown]
  - Toxicity to various agents [Unknown]
  - Memory impairment [Not Recovered/Not Resolved]
  - Pyrexia [Unknown]
  - Nausea [Not Recovered/Not Resolved]
  - Sluggishness [Unknown]
  - Arthralgia [Not Recovered/Not Resolved]
  - Malaise [Not Recovered/Not Resolved]
  - Necrosis [Unknown]
  - Chills [Unknown]
